FAERS Safety Report 9344562 (Version 1)
Quarter: 2013Q2

REPORT INFORMATION
  Report Type: Spontaneous
  Country: US (occurrence: None)
  Receive Date: 20130611
  Receipt Date: 20130611
  Transmission Date: 20140414
  Serious: Yes (Life-Threatening, Disabling, Other)
  Sender: FDA-Public Use
  Company Number: None

PATIENT
  Age: 46 Year
  Sex: Female

DRUGS (2)
  1. CELEBREX [Suspect]
     Indication: INFLAMMATION
     Route: 048
     Dates: start: 19950901, end: 20101201
  2. CELEBREX [Suspect]
     Indication: OSTEOARTHRITIS
     Route: 048
     Dates: start: 19950901, end: 20101201

REACTIONS (3)
  - Kidney enlargement [None]
  - Renal disorder [None]
  - Glomerular filtration rate decreased [None]
